FAERS Safety Report 23865356 (Version 1)
Quarter: 2024Q2

REPORT INFORMATION
  Report Type: Spontaneous
  Country: LB (occurrence: LB)
  Receive Date: 20240517
  Receipt Date: 20240517
  Transmission Date: 20240715
  Serious: Yes (Death, Other)
  Sender: FDA-Public Use
  Company Number: LB-NOVOPROD-1218497

PATIENT
  Age: 20 Year
  Sex: Female

DRUGS (1)
  1. NOVOSEVEN RT [Suspect]
     Active Substance: COAGULATION FACTOR VIIA RECOMBINANT HUMAN
     Indication: Haemorrhage prophylaxis
     Dosage: 2 MG

REACTIONS (3)
  - Road traffic accident [Fatal]
  - Haemorrhage [Fatal]
  - Off label use [Unknown]
